FAERS Safety Report 25724485 (Version 1)
Quarter: 2025Q3

REPORT INFORMATION
  Report Type: Spontaneous
  Country: TR (occurrence: TR)
  Receive Date: 20250826
  Receipt Date: 20250826
  Transmission Date: 20251020
  Serious: Yes (Congenital Anomaly, Other)
  Sender: MSN LABORATORIES PRIVATE LIMITED
  Company Number: TR-MSNLABS-2025MSNLIT02323

PATIENT

DRUGS (1)
  1. LEVETIRACETAM [Suspect]
     Active Substance: LEVETIRACETAM
     Indication: Product used for unknown indication
     Route: 064

REACTIONS (2)
  - Neurodevelopmental delay [Recovered/Resolved]
  - Foetal exposure during pregnancy [Unknown]
